FAERS Safety Report 6891250-3 (Version None)
Quarter: 2010Q3

REPORT INFORMATION
  Report Type: 
  Country: None (occurrence: None)
  Receive Date: 20100731
  Receipt Date: 20090707
  Transmission Date: 20110219
  Serious: No
  Sender: FDA-Public Use
  Company Number: US-PFIZER INC-2009237284

PATIENT
  Age: 71 Year
  Sex: Female
  Weight: 70.76 kg

DRUGS (6)
  1. LIPITOR [Suspect]
     Indication: BLOOD CHOLESTEROL INCREASED
     Dosage: UNK
     Dates: start: 20090401
  2. ACETYLSALICYLIC ACID [Concomitant]
     Dosage: UNK
  3. BIOTIN [Concomitant]
     Dosage: UNK
  4. ATACAND [Concomitant]
     Dosage: UNK
  5. CELEXA [Concomitant]
     Dosage: UNK
  6. BENTYL [Concomitant]
     Dosage: UNK

REACTIONS (1)
  - ALOPECIA [None]
